FAERS Safety Report 15274325 (Version 3)
Quarter: 2023Q4

REPORT INFORMATION
  Report Type: Spontaneous
  Country: ES (occurrence: ES)
  Receive Date: 20180814
  Receipt Date: 20231213
  Transmission Date: 20240110
  Serious: Yes (Hospitalization, Other)
  Sender: FDA-Public Use
  Company Number: ES-AUROBINDO-AUR-APL-2018-040621

PATIENT
  Age: 86 Year
  Sex: Female

DRUGS (8)
  1. ATORVASTATIN [Interacting]
     Active Substance: ATORVASTATIN
     Indication: Acute myocardial infarction
     Dosage: 80 MILLIGRAM, DAILY 80 MILLIGRAM, Q24H
     Route: 048
     Dates: start: 202102
  2. AMIODARONE [Interacting]
     Active Substance: AMIODARONE
     Indication: Ventricular tachycardia
     Dosage: 200 MILLIGRAM, Q24H, ONE TABLET TO THE FOOD
     Route: 048
     Dates: start: 20180131, end: 20180305
  3. BISOPROLOL [Concomitant]
     Active Substance: BISOPROLOL\BISOPROLOL FUMARATE
     Indication: Tachycardia
     Dosage: 2.5 MILLIGRAM, TWO TIMES A DAY ( Q12H, ONE TABLET FOR BREAKFAST AND ANOTHER FOR DINNER)
     Route: 048
     Dates: start: 2018
  4. ASPIRIN [Concomitant]
     Active Substance: ASPIRIN
     Indication: Product used for unknown indication
     Dosage: 100 MILLIGRAM, ONCE A DAY (Q24H, ONE TABLET TO THE FOOD)
     Route: 048
     Dates: start: 2018
  5. OMEPRAZOLE [Concomitant]
     Active Substance: OMEPRAZOLE
     Indication: Product used for unknown indication
     Dosage: 20 MILLIGRAM, DAILY
     Route: 048
  6. LEXATIN                            /00424801/ [Concomitant]
     Indication: Product used for unknown indication
     Dosage: 1.5 MILLIGRAM, DAILY (1.5 MILLIGRAM, Q24H)
     Route: 048
  7. CLOPIDOGREL [Concomitant]
     Active Substance: CLOPIDOGREL BISULFATE
     Indication: Product used for unknown indication
     Dosage: 75 MILLIGRAM, Q24H, ONE TABLET TO THE FOOD
     Route: 048
     Dates: start: 2018
  8. FUROSEMIDE [Concomitant]
     Active Substance: FUROSEMIDE
     Indication: Cardiac failure
     Dosage: 40 MILLIGRAM, DAILY ( Q24H,ONE TABLET FOR BREAKFAST)
     Route: 048
     Dates: start: 2018, end: 20180305

REACTIONS (5)
  - Asthenia [Recovering/Resolving]
  - Decreased appetite [Recovering/Resolving]
  - Hepatitis toxic [Recovering/Resolving]
  - Muscular weakness [Recovering/Resolving]
  - Rhabdomyolysis [Recovered/Resolved]

NARRATIVE: CASE EVENT DATE: 20180201
